FAERS Safety Report 24041835 (Version 1)
Quarter: 2024Q3

REPORT INFORMATION
  Report Type: Spontaneous
  Country: US (occurrence: US)
  Receive Date: 20240702
  Receipt Date: 20240702
  Transmission Date: 20241016
  Serious: No
  Sender: NOBELPHARMA
  Company Number: US-Nobelpharma America, LLC-NPA-2024-01094

PATIENT
  Age: 5 Year
  Sex: Male

DRUGS (1)
  1. HYFTOR [Suspect]
     Active Substance: SIROLIMUS
     Indication: Angiofibroma
     Route: 003
     Dates: start: 20240405

REACTIONS (2)
  - Application site pain [Unknown]
  - Off label use [None]

NARRATIVE: CASE EVENT DATE: 20240405
